FAERS Safety Report 6560026-9 (Version None)
Quarter: 2010Q1

REPORT INFORMATION
  Report Type: 
  Country: None (occurrence: None)
  Receive Date: 20100129
  Receipt Date: 20090921
  Transmission Date: 20100710
  Serious: No
  Sender: FDA-Public Use
  Company Number: US-ABBOTT-09P-163-0598310-00

PATIENT
  Sex: Female
  Weight: 57.204 kg

DRUGS (7)
  1. HUMIRA [Suspect]
     Indication: RHEUMATOID ARTHRITIS
     Dates: start: 20051203, end: 20090701
  2. HUMIRA [Suspect]
     Dates: start: 20090701, end: 20090826
  3. NORVASC [Concomitant]
     Indication: HYPERTENSION
  4. MICARTA [Concomitant]
     Indication: HYPERTENSION
  5. CALCIUM [Concomitant]
     Indication: DRUG USE FOR UNKNOWN INDICATION
  6. FISH OIL [Concomitant]
     Indication: DRUG USE FOR UNKNOWN INDICATION
  7. MULTI-VITAMINS [Concomitant]
     Indication: DRUG USE FOR UNKNOWN INDICATION

REACTIONS (3)
  - DRY EYE [None]
  - EYE PAIN [None]
  - VISION BLURRED [None]
